FAERS Safety Report 7598372-2 (Version None)
Quarter: 2011Q3

REPORT INFORMATION
  Report Type: 
  Country: None (occurrence: None)
  Receive Date: 20110708
  Receipt Date: 20110706
  Transmission Date: 20111222
  Serious: No
  Sender: FDA-Public Use
  Company Number: CHPA2011DE09009

PATIENT
  Sex: Male

DRUGS (1)
  1. LAMISIL [Suspect]
     Indication: TINEA PEDIS
     Dosage: 1 DF, QD
     Route: 061
     Dates: start: 20110501, end: 20110701

REACTIONS (2)
  - INCORRECT DRUG ADMINISTRATION DURATION [None]
  - APPLICATION SITE BLEEDING [None]
